FAERS Safety Report 24531425 (Version 1)
Quarter: 2024Q4

REPORT INFORMATION
  Report Type: Spontaneous
  Country: GB (occurrence: GB)
  Receive Date: 20241022
  Receipt Date: 20241022
  Transmission Date: 20250114
  Serious: No
  Sender: ROCHE
  Company Number: GB-MHRA-MED-202306010924211330-RZCYV

PATIENT
  Age: 31 Year
  Sex: Female

DRUGS (4)
  1. PULMOZYME [Suspect]
     Active Substance: DORNASE ALFA
     Indication: Cystic fibrosis
     Route: 065
  2. COLOMYCIN [Concomitant]
  3. ELEXACAFTOR\IVACAFTOR\TEZACAFTOR [Concomitant]
     Active Substance: ELEXACAFTOR\IVACAFTOR\TEZACAFTOR
  4. KALYDECO [Concomitant]
     Active Substance: IVACAFTOR

REACTIONS (2)
  - Fatigue [Unknown]
  - Maternal exposure timing unspecified [Unknown]
